FAERS Safety Report 12671295 (Version 1)
Quarter: 2016Q3

REPORT INFORMATION
  Report Type: Spontaneous
  Country: US (occurrence: US)
  Receive Date: 20160822
  Receipt Date: 20160822
  Transmission Date: 20161109
  Serious: No
  Sender: FDA-Public Use
  Company Number: US-TEVA-657965USA

PATIENT
  Age: 59 Year
  Sex: Female

DRUGS (4)
  1. FEXOFENADINE [Suspect]
     Active Substance: FEXOFENADINE\FEXOFENADINE HYDROCHLORIDE
     Indication: EYE PRURITUS
  2. FEXOFENADINE [Suspect]
     Active Substance: FEXOFENADINE\FEXOFENADINE HYDROCHLORIDE
     Indication: PERENNIAL ALLERGY
  3. FEXOFENADINE [Suspect]
     Active Substance: FEXOFENADINE\FEXOFENADINE HYDROCHLORIDE
     Indication: RHINORRHOEA
     Dosage: 180 MILLIGRAM DAILY;
     Route: 048
     Dates: start: 201604, end: 201604
  4. MULTIVITAMIN [Concomitant]
     Active Substance: VITAMINS
     Route: 065
     Dates: start: 2012

REACTIONS (4)
  - Back pain [Recovering/Resolving]
  - Pollakiuria [Recovering/Resolving]
  - Irritability [Recovering/Resolving]
  - Feeling jittery [Recovering/Resolving]

NARRATIVE: CASE EVENT DATE: 201604
